FAERS Safety Report 7482282-5 (Version None)
Quarter: 2011Q2

REPORT INFORMATION
  Report Type: 
  Country: None (occurrence: None)
  Receive Date: 20110516
  Receipt Date: 20110509
  Transmission Date: 20111010
  Serious: Yes (Hospitalization)
  Sender: FDA-Public Use
  Company Number: FR-PFIZER INC-2011098460

PATIENT
  Age: 31 Year
  Sex: Female

DRUGS (1)
  1. SIROLIMUS [Suspect]
     Indication: IMMUNOSUPPRESSANT DRUG THERAPY
     Dosage: UNK
     Route: 048
     Dates: start: 20080411, end: 20080604

REACTIONS (2)
  - PANCREAS TRANSPLANT REJECTION [None]
  - PANCREATIC ENZYMES INCREASED [None]
